FAERS Safety Report 10013826 (Version 1)
Quarter: 2014Q1

REPORT INFORMATION
  Report Type: Spontaneous
  Country: US (occurrence: US)
  Receive Date: 20140316
  Receipt Date: 20140316
  Transmission Date: 20141002
  Serious: No
  Sender: FDA-Public Use
  Company Number: US-009507513-1403USA002283

PATIENT
  Age: 17 Year
  Sex: Female
  Weight: 83.9 kg

DRUGS (1)
  1. NEXPLANON [Suspect]
     Indication: CONTRACEPTION
     Dosage: 1 ROD/3YEARS: INSERT LEFT ARM
     Route: 058
     Dates: start: 20131105

REACTIONS (11)
  - Abdominal tenderness [Unknown]
  - Abdominal pain [Unknown]
  - Depressed mood [Unknown]
  - Fatigue [Unknown]
  - Fatigue [Unknown]
  - Menorrhagia [Unknown]
  - Menorrhagia [Unknown]
  - Menorrhagia [Unknown]
  - Rash [Unknown]
  - Back pain [Unknown]
  - Medication error [Unknown]
